FAERS Safety Report 7715242 (Version 4)
Quarter: 2013Q3

REPORT INFORMATION
  Report Type: Report from Study
  Country: DE (occurrence: DE)
  Receive Date: 20101216
  Receipt Date: 20130913
  Transmission Date: 20140515
  Serious: Yes (Hospitalization)
  Sender: FDA-Public Use
  Company Number: PHHY2010DE82891

PATIENT
  Age: 74 Year
  Sex: Female
  Weight: 81 kg

DRUGS (8)
  1. AMN107 [Suspect]
     Dosage: 800 MG, QD
     Route: 048
     Dates: start: 20100202, end: 20100210
  2. AMN107 [Suspect]
     Dosage: 800 MG, QD
     Route: 048
     Dates: start: 20100223, end: 20100302
  3. AMN107 [Suspect]
     Dosage: 1 DF, 200 MG/ WEEK
     Dates: start: 20100913, end: 20101025
  4. AMN107 [Suspect]
     Dosage: 1 DF, 200 MG TWICE WEEKLY (MON/THURS) AND EVERY OTHER WEEK ONCE WEEKLY (MONDAY)
     Route: 048
     Dates: start: 20101026
  5. DECORTIN [Concomitant]
     Indication: COMPUTERISED TOMOGRAM ABNORMAL
     Dosage: UNK UKN, UNK
  6. RANITIC [Concomitant]
     Indication: COMPUTERISED TOMOGRAM ABNORMAL
     Dosage: UNK UKN, UNK
  7. TAVEGIL [Concomitant]
     Indication: COMPUTERISED TOMOGRAM ABNORMAL
     Dosage: UNK UKN, UNK
  8. IRENAT [Concomitant]
     Indication: COMPUTERISED TOMOGRAM ABNORMAL
     Dosage: UNK UKN, UNK

REACTIONS (7)
  - Pneumonia [Recovered/Resolved]
  - Bronchopneumonia [Recovered/Resolved]
  - Lung infiltration [Recovered/Resolved]
  - Pancytopenia [Recovered/Resolved]
  - Cardiac failure [Recovered/Resolved]
  - Palpitations [Recovered/Resolved]
  - Thrombocytopenia [Recovered/Resolved]
